FAERS Safety Report 8008044-8 (Version None)
Quarter: 2011Q4

REPORT INFORMATION
  Report Type: 
  Country: None (occurrence: None)
  Receive Date: 20111227
  Receipt Date: 20111219
  Transmission Date: 20120403
  Serious: Yes (Other)
  Sender: FDA-Public Use
  Company Number: PHEH2011US07352

PATIENT
  Sex: Female
  Weight: 62.132 kg

DRUGS (17)
  1. VIVELLE-DOT [Suspect]
     Dosage: 0.05 MG, QW2
     Route: 062
  2. ESTRACE [Concomitant]
     Dosage: TWO TIME PER WEEK
     Route: 067
  3. NASACORT [Concomitant]
     Dosage: UNK
  4. AVONEX [Concomitant]
     Dosage: ONCE IN A WEEK
  5. LEVOTHYROXINE SODIUM [Concomitant]
     Dosage: 75 UG
  6. CALCIUM ACETATE [Concomitant]
     Dosage: UNK
  7. VITAMIN D [Concomitant]
     Dosage: UNK
  8. PRAMIPEXOLE DIHYDROCHLORIDE [Concomitant]
     Indication: RESTLESS LEGS SYNDROME
     Dosage: 0.25 MG, ONE TO TWO TIMES PER WEEK
  9. AMBIEN [Concomitant]
     Indication: INSOMNIA
     Dosage: 10 MG, PRN
  10. VENTOLIN [Concomitant]
     Indication: DYSPNOEA
     Dosage: UNK, PRN
  11. EXCEDRIN (MIGRAINE) [Concomitant]
     Dosage: AS PER NEED
  12. MULTI-VITAMINS [Concomitant]
     Dosage: UNK
  13. ACETAMINOPHEN [Concomitant]
     Dosage: UNK
  14. ELMIRON [Suspect]
     Indication: CYSTITIS INTERSTITIAL
     Dosage: 100 MG, BID
     Route: 048
     Dates: start: 20101116, end: 20101119
  15. MAGNESIUM [Concomitant]
     Dosage: UNK
  16. FISH OIL [Concomitant]
     Dosage: UNK
  17. LOVAZA [Concomitant]
     Dosage: UNK

REACTIONS (16)
  - BLADDER IRRITATION [None]
  - FEELING ABNORMAL [None]
  - WRONG TECHNIQUE IN DRUG USAGE PROCESS [None]
  - STRESS URINARY INCONTINENCE [None]
  - BLADDER PAIN [None]
  - SUPRAPUBIC PAIN [None]
  - ABDOMINAL PAIN [None]
  - URETHRAL DISORDER [None]
  - BLADDER DISCOMFORT [None]
  - PELVIC PAIN [None]
  - HOT FLUSH [None]
  - CYSTITIS INTERSTITIAL [None]
  - ALOPECIA [None]
  - HEART RATE DECREASED [None]
  - MICTURITION URGENCY [None]
  - BLOOD PRESSURE DIASTOLIC DECREASED [None]
